FAERS Safety Report 7119198-X (Version None)
Quarter: 2010Q4

REPORT INFORMATION
  Report Type: 
  Country: None (occurrence: None)
  Receive Date: 20101123
  Receipt Date: 20100414
  Transmission Date: 20110411
  Serious: No
  Sender: FDA-Public Use
  Company Number: US-MYLANLABS-2010S1006433

PATIENT
  Age: 60 Year
  Sex: Female

DRUGS (1)
  1. MAXZIDE [Suspect]

REACTIONS (1)
  - FLUID RETENTION [None]
